FAERS Safety Report 14419433 (Version 2)
Quarter: 2018Q1

REPORT INFORMATION
  Report Type: Spontaneous
  Country: ES (occurrence: ES)
  Receive Date: 20180122
  Receipt Date: 20180301
  Transmission Date: 20180509
  Serious: Yes (Hospitalization, Other)
  Sender: FDA-Public Use
  Company Number: ES-IMPAX LABORATORIES, INC-2017-IPXL-03382

PATIENT
  Age: 75 Year
  Sex: Male

DRUGS (7)
  1. DIVALPROEX SODIUM ER [Suspect]
     Active Substance: DIVALPROEX SODIUM
     Dosage: 500 MG, EVERY 12HR
     Route: 048
  2. DIVALPROEX SODIUM ER [Suspect]
     Active Substance: DIVALPROEX SODIUM
     Dosage: INCREASED TO 200 MG/DAY
     Route: 065
  3. DIVALPROEX SODIUM ER [Suspect]
     Active Substance: DIVALPROEX SODIUM
     Indication: GENERALISED TONIC-CLONIC SEIZURE
     Dosage: 1,600 MG, DAILY
     Route: 042
  4. RIVASTIGMINE. [Suspect]
     Active Substance: RIVASTIGMINE
     Indication: PRODUCT USED FOR UNKNOWN INDICATION
     Dosage: 9.5 MG/DAY
     Route: 065
  5. DIVALPROEX SODIUM ER [Suspect]
     Active Substance: DIVALPROEX SODIUM
     Dosage: 1200 MG/24 H
     Route: 042
  6. LAMOTRIGINE ODT [Suspect]
     Active Substance: LAMOTRIGINE
     Indication: FOCAL DYSCOGNITIVE SEIZURES
     Dosage: 700 MG, DAILY IN THREE DOSES
     Route: 065
  7. QUETIAPINE. [Suspect]
     Active Substance: QUETIAPINE
     Indication: PRODUCT USED FOR UNKNOWN INDICATION
     Dosage: 150 MG, DAILY IN THREE DOSES
     Route: 065

REACTIONS (3)
  - Anticonvulsant drug level below therapeutic [Unknown]
  - Ileus [Recovered/Resolved]
  - Hyperammonaemic encephalopathy [Recovered/Resolved]
